FAERS Safety Report 6751554-1 (Version None)
Quarter: 2010Q2

REPORT INFORMATION
  Report Type: 
  Country: None (occurrence: None)
  Receive Date: 20100602
  Receipt Date: 20100524
  Transmission Date: 20101027
  Serious: Yes (Hospitalization, Disabling)
  Sender: FDA-Public Use
  Company Number: ZA-SANOFI-AVENTIS-2010SA029675

PATIENT
  Age: 65 Year
  Sex: Female

DRUGS (7)
  1. LANTUS [Suspect]
     Route: 058
  2. LANTUS [Suspect]
     Route: 058
  3. INSULIN PEN NOS [Suspect]
  4. HUMALOG [Concomitant]
     Dosage: 10-14 UNITS
     Route: 058
  5. PERINDOPRIL [Concomitant]
     Indication: HYPERTENSION
     Route: 048
  6. INDAPAMIDE [Concomitant]
     Indication: HYPERTENSION
     Route: 048
  7. BISOPROLOL FUMARATE [Concomitant]
     Indication: HYPERTENSION
     Route: 048

REACTIONS (3)
  - ANKLE FRACTURE [None]
  - BLOOD GLUCOSE FLUCTUATION [None]
  - HYPOGLYCAEMIC COMA [None]
